FAERS Safety Report 21798486 (Version 1)
Quarter: 2022Q4

REPORT INFORMATION
  Report Type: Spontaneous
  Country: CA (occurrence: CA)
  Receive Date: 20221230
  Receipt Date: 20221230
  Transmission Date: 20230112
  Serious: Yes (Hospitalization, Other)
  Sender: FDA-Public Use
  Company Number: CA-ALKEM LABORATORIES LIMITED-CA-ALKEM-2022-13570

PATIENT
  Age: 87 Year
  Sex: Male

DRUGS (4)
  1. DABIGATRAN ETEXILATE MESYLATE [Suspect]
     Active Substance: DABIGATRAN ETEXILATE MESYLATE
     Indication: Atrial fibrillation
     Dosage: UNK
     Route: 048
  2. DABIGATRAN ETEXILATE MESYLATE [Suspect]
     Active Substance: DABIGATRAN ETEXILATE MESYLATE
     Indication: Embolism venous
  3. IDARUCIZUMAB [Suspect]
     Active Substance: IDARUCIZUMAB
     Indication: Atrial fibrillation
     Dosage: UNK
     Route: 048
  4. IDARUCIZUMAB [Suspect]
     Active Substance: IDARUCIZUMAB
     Indication: Embolism venous

REACTIONS (1)
  - Rectal haemorrhage [Recovered/Resolved]
